FAERS Safety Report 24224393 (Version 1)
Quarter: 2024Q3

REPORT INFORMATION
  Report Type: Spontaneous
  Country: TR (occurrence: TR)
  Receive Date: 20240819
  Receipt Date: 20240819
  Transmission Date: 20241017
  Serious: Yes (Disabling, Other)
  Sender: NOVO NORDISK
  Company Number: TR-NOVOPROD-1269671

PATIENT
  Sex: Male

DRUGS (12)
  1. NOVORAPID [Suspect]
     Active Substance: INSULIN ASPART
     Indication: Product used for unknown indication
     Dosage: UNK
  2. PANTOPRAZOLE SODIUM [Concomitant]
     Active Substance: PANTOPRAZOLE SODIUM
     Dosage: 40 MG, QD (1X1)
  3. VIDAPTIN MET [Concomitant]
     Dosage: UNK, BID (2X1)
  4. NEBIVOLOL HYDROCHLORIDE [Concomitant]
     Active Substance: NEBIVOLOL HYDROCHLORIDE
     Dosage: 5 MG, QD (1X1)
  5. PLAVIX [Concomitant]
     Active Substance: CLOPIDOGREL BISULFATE
     Dosage: 75 MG, QD (1X1)
  6. RANOLAZINE [Concomitant]
     Active Substance: RANOLAZINE
     Dosage: 375 MG, QD (1X1)
  7. DESIREL [Concomitant]
     Dosage: 50 MG, BID  (2X1)
  8. LUSTRAL [Concomitant]
     Active Substance: SERTRALINE HYDROCHLORIDE
     Dosage: 100 MG, QD (2X1),
  9. URSODIOL [Concomitant]
     Active Substance: URSODIOL
     Dosage: 250 MG, QD (1X1)
  10. PITAVASTATIN [Concomitant]
     Active Substance: PITAVASTATIN
     Dosage: 4 MG, QD (1X1)
  11. ALERINIT [Concomitant]
     Dosage: UNK, QD (1X1),
  12. CORTISONE [Concomitant]
     Active Substance: CORTISONE
     Dosage: UNK

REACTIONS (3)
  - Disability [Unknown]
  - Hyperglycaemia [Unknown]
  - Drug ineffective [Unknown]
